FAERS Safety Report 22345615 (Version 2)
Quarter: 2023Q2

REPORT INFORMATION
  Report Type: Spontaneous
  Country: NO (occurrence: NO)
  Receive Date: 20230519
  Receipt Date: 20230526
  Transmission Date: 20230721
  Serious: Yes (Life-Threatening)
  Sender: FDA-Public Use
  Company Number: NO-TAKEDA-2023TUS049442

PATIENT
  Age: 23 Year
  Sex: Female

DRUGS (1)
  1. PROCRIN [Suspect]
     Active Substance: LEUPROLIDE ACETATE
     Indication: Endometriosis
     Dosage: 3.75 MILLIGRAM, Q4WEEKS??FORM STRENGTH: 3.75 MILLIGRAM
     Route: 058
     Dates: start: 20230220, end: 20230320

REACTIONS (4)
  - Circulatory collapse [Recovered/Resolved]
  - Urticaria [Recovered/Resolved]
  - Chest discomfort [Recovered/Resolved]
  - Oral pruritus [Recovered/Resolved]

NARRATIVE: CASE EVENT DATE: 20230320
